FAERS Safety Report 8707586 (Version 2)
Quarter: 2012Q4

REPORT INFORMATION
  Report Type: 
  Country: US (occurrence: US)
  Receive Date: 20120805
  Receipt Date: 20121202
  Transmission Date: 20130627
  Serious: No
  Sender: FDA-Public Use
  Company Number: US-009507513-2012SP028644

PATIENT
  Age: 64 Year
  Sex: Male
  Weight: 90.7 kg

DRUGS (4)
  1. CLARITIN-D 24 HOUR [Suspect]
     Indication: HYPERSENSITIVITY
     Dosage: 10 mg, q12h
     Route: 048
     Dates: start: 20120404
  2. CLARITIN-D 24 HOUR [Suspect]
     Indication: MEDICAL OBSERVATION
  3. TERAZOSIN HYDROCHLORIDE [Concomitant]
     Indication: PROSTATIC PAIN
     Dosage: UNK UNK, Unknown
  4. MELOXICAM [Concomitant]
     Indication: PROSTATITIS
     Dosage: UNK, Unknown

REACTIONS (4)
  - Dysuria [Recovered/Resolved]
  - Muscle strain [Recovered/Resolved]
  - Inappropriate schedule of drug administration [Unknown]
  - Overdose [Unknown]
